FAERS Safety Report 21700915 (Version 8)
Quarter: 2024Q4

REPORT INFORMATION
  Report Type: Report from Study
  Country: EG (occurrence: EG)
  Receive Date: 20221208
  Receipt Date: 20241023
  Transmission Date: 20250114
  Serious: Yes (Other)
  Sender: NOVARTIS
  Company Number: EG-002147023-NVSC2022EG248571

PATIENT
  Age: 55 Year
  Sex: Female
  Weight: 84 kg

DRUGS (17)
  1. KISQALI [Suspect]
     Active Substance: RIBOCICLIB
     Indication: Metastases to bone
     Dosage: 200 MG
     Route: 048
  2. KISQALI [Suspect]
     Active Substance: RIBOCICLIB
     Indication: Metastases to kidney
     Dosage: 3 DOSAGE FORM, QD (FOR 21 DAYS AND ONE WEEK OFF)
     Route: 048
     Dates: start: 20220501
  3. KISQALI [Suspect]
     Active Substance: RIBOCICLIB
     Indication: Metastases to lung
     Dosage: 3 DOSAGE FORM, QD (FOR 21 DAYS AND 1 WEEK OFF)
     Route: 048
     Dates: start: 202206
  4. KISQALI [Suspect]
     Active Substance: RIBOCICLIB
     Indication: Metastases to central nervous system
     Dosage: 600 MG, QD, 3 TABLETS ONCE DAILY FOR 21DAYS AND ONE WEEK OFF
     Route: 048
     Dates: start: 202406
  5. KISQALI [Suspect]
     Active Substance: RIBOCICLIB
     Indication: Breast cancer metastatic
  6. FEMARA [Suspect]
     Active Substance: LETROZOLE
     Indication: Metastases to bone
     Dosage: 1 DOSAGE FORM, QD
     Route: 048
     Dates: start: 20220501
  7. FEMARA [Suspect]
     Active Substance: LETROZOLE
     Indication: Metastases to central nervous system
     Dosage: 1 DOSAGE FORM, QD
     Route: 048
     Dates: start: 202206
  8. FEMARA [Suspect]
     Active Substance: LETROZOLE
     Indication: Metastases to kidney
     Dosage: 1 DOSAGE FORM, QD
     Route: 048
     Dates: start: 2022
  9. FEMARA [Suspect]
     Active Substance: LETROZOLE
     Indication: Metastases to lung
  10. FEMARA [Suspect]
     Active Substance: LETROZOLE
     Indication: Breast cancer metastatic
  11. ZOMETA [Suspect]
     Active Substance: ZOLEDRONIC ACID
     Indication: Bone disorder
     Dosage: 1 DOSAGE FORM, EVERY 28 DAYS(1 INJECTION)
     Route: 065
     Dates: start: 202206
  12. ZOMETA [Suspect]
     Active Substance: ZOLEDRONIC ACID
     Dosage: UNK (EVERY MONTH AND THEN EVERY 2 MONTHS)
     Route: 065
     Dates: start: 20220702
  13. CORTISONE [Concomitant]
     Active Substance: CORTISONE
     Indication: Product used for unknown indication
     Dosage: 8 MG TABLET
     Route: 048
  14. CORTISONE [Concomitant]
     Active Substance: CORTISONE
     Dosage: 1 DOSAGE FORM, QD
     Route: 065
     Dates: start: 202209, end: 20221015
  15. CALCIUM [Concomitant]
     Active Substance: CALCIUM
     Indication: Product used for unknown indication
     Route: 065
  16. VITAMIN D [Concomitant]
     Active Substance: VITAMIN D NOS
     Indication: Product used for unknown indication
     Route: 065
  17. IRON [Concomitant]
     Active Substance: IRON
     Indication: Product used for unknown indication
     Dosage: 1 DOSAGE FORM (TABLET), QD
     Route: 065
     Dates: start: 202205

REACTIONS (25)
  - Decreased immune responsiveness [Recovering/Resolving]
  - Haematemesis [Recovering/Resolving]
  - Metastases to spine [Recovering/Resolving]
  - Epistaxis [Recovering/Resolving]
  - Cataract [Not Recovered/Not Resolved]
  - Retinal injury [Not Recovered/Not Resolved]
  - Blindness [Not Recovered/Not Resolved]
  - Haemoglobin decreased [Recovering/Resolving]
  - Platelet count decreased [Recovering/Resolving]
  - Nausea [Not Recovered/Not Resolved]
  - Dizziness [Not Recovered/Not Resolved]
  - Decreased appetite [Not Recovered/Not Resolved]
  - Ocular hypertension [Recovering/Resolving]
  - Vision blurred [Recovering/Resolving]
  - Constipation [Recovering/Resolving]
  - Anal fistula [Recovering/Resolving]
  - Fibrosis [Unknown]
  - General physical condition abnormal [Unknown]
  - Hypotension [Not Recovered/Not Resolved]
  - Gastrointestinal disorder [Unknown]
  - Movement disorder [Unknown]
  - Diarrhoea [Unknown]
  - Fatigue [Unknown]
  - Feeling abnormal [Unknown]
  - Macrocytosis [Recovered/Resolved]

NARRATIVE: CASE EVENT DATE: 20220901
